FAERS Safety Report 5033671-X (Version None)
Quarter: 2006Q2

REPORT INFORMATION
  Report Type: 
  Country: None (occurrence: None)
  Receive Date: 20060620
  Receipt Date: 20060602
  Transmission Date: 20061013
  Serious: Yes (Other)
  Sender: FDA-Public Use
  Company Number: FR200606000480

PATIENT
  Age: 44 Year
  Sex: Male

DRUGS (3)
  1. SOMATROPIN (SOMATROPIN) VIAL [Suspect]
     Indication: GROWTH HORMONE DEFICIENCY
     Dosage: 0.4 MG, DAILY (1/D), SUBCUTANEOUS
     Route: 058
  2. LEVOTHYROXINE SODIUM [Concomitant]
  3. ANDROTARDYL (TESTOSTERONE ENANTATE) [Concomitant]

REACTIONS (2)
  - PITUITARY TUMOUR BENIGN [None]
  - PITUITARY TUMOUR RECURRENT [None]
